FAERS Safety Report 8367451-4 (Version None)
Quarter: 2012Q2

REPORT INFORMATION
  Report Type: 
  Country: None (occurrence: None)
  Receive Date: 20120517
  Receipt Date: 20120209
  Transmission Date: 20120825
  Serious: No
  Sender: FDA-Public Use
  Company Number: US-GLAXOSMITHKLINE-A0965580A

PATIENT
  Age: 69 Year
  Sex: Female
  Weight: 93.2 kg

DRUGS (8)
  1. LIPITOR [Concomitant]
  2. CARVEDILOL [Concomitant]
  3. CREON [Concomitant]
  4. NITROFURANTOIN [Concomitant]
  5. HUMULIN R [Concomitant]
  6. PLAVIX [Concomitant]
  7. LASIX [Concomitant]
  8. VOTRIENT [Suspect]
     Dosage: 800MG PER DAY
     Route: 048
     Dates: start: 20120201

REACTIONS (3)
  - FATIGUE [None]
  - DECREASED APPETITE [None]
  - NAUSEA [None]
